FAERS Safety Report 4497324-9 (Version None)
Quarter: 2004Q3

REPORT INFORMATION
  Report Type: 
  Country: None (occurrence: None)
  Receive Date: 20040927
  Receipt Date: 20040723
  Transmission Date: 20050211
  Serious: No
  Sender: FDA-Public Use
  Company Number: USA040773510

PATIENT
  Sex: Female

DRUGS (6)
  1. STRATTERA [Suspect]
     Dosage: 80 MG DAY
     Dates: start: 20040320
  2. FLUOXETINE HYDROCHLORIDE [Concomitant]
  3. ZYRTEC [Concomitant]
  4. THYROID TAB [Concomitant]
  5. MOBIC [Concomitant]
  6. SKELAXIN [Concomitant]

REACTIONS (1)
  - NORMETANEPHRINE URINE INCREASED [None]
